FAERS Safety Report 17375467 (Version 1)
Quarter: 2020Q1

REPORT INFORMATION
  Report Type: Spontaneous
  Country: US (occurrence: US)
  Receive Date: 20200206
  Receipt Date: 20200206
  Transmission Date: 20200409
  Serious: No
  Sender: FDA-Public Use
  Company Number: US-LUNDBECK-DKLU3011452

PATIENT
  Sex: Male

DRUGS (2)
  1. NORTHERA [Suspect]
     Active Substance: DROXIDOPA
     Indication: PARKINSON^S DISEASE
     Dosage: 300MG AND 100MG TO MAKE 400MG. TITRATION COMPLETE
     Route: 048
     Dates: start: 20190701
  2. NORTHERA [Suspect]
     Active Substance: DROXIDOPA
     Indication: ORTHOSTATIC HYPOTENSION
     Dosage: 300MG AND 100MG TO MAKE 400MG. TITRATION COMPLETE
     Route: 048
     Dates: start: 20190701

REACTIONS (1)
  - Incorrect dose administered [Unknown]
